FAERS Safety Report 7982328-1 (Version None)
Quarter: 2011Q4

REPORT INFORMATION
  Report Type: 
  Country: None (occurrence: None)
  Receive Date: 20111215
  Receipt Date: 20111202
  Transmission Date: 20120403
  Serious: Yes (Other)
  Sender: FDA-Public Use
  Company Number: PHHY2011US106831

PATIENT
  Age: 70 Year
  Sex: Female

DRUGS (2)
  1. PAMIDRONATE DISODIUM [Suspect]
     Indication: BREAST CANCER
     Dosage: UNK UKN, UNK
  2. ZOLEDRONIC ACID [Suspect]
     Indication: BREAST CANCER
     Dosage: UNK UKN, UNK

REACTIONS (1)
  - OSTEONECROSIS OF JAW [None]
